FAERS Safety Report 16300754 (Version 1)
Quarter: 2019Q2

REPORT INFORMATION
  Report Type: Spontaneous
  Country: US (occurrence: US)
  Receive Date: 20190510
  Receipt Date: 20190510
  Transmission Date: 20190711
  Serious: Yes (Hospitalization, Other)
  Sender: FDA-Public Use
  Company Number: US-APOTEX-2019AP013675

PATIENT
  Age: 58 Year
  Sex: Female

DRUGS (1)
  1. ALBUTEROL SULFATE  INHALATION SOLUTION [Suspect]
     Active Substance: ALBUTEROL SULFATE
     Indication: ASTHMA PROPHYLAXIS
     Dosage: FREQUENT USE
     Route: 065

REACTIONS (4)
  - Hypotension [Recovered/Resolved]
  - Overdose [Recovered/Resolved]
  - Loss of consciousness [Recovered/Resolved]
  - Stress cardiomyopathy [Recovered/Resolved]
